FAERS Safety Report 5460891-2 (Version None)
Quarter: 2007Q3

REPORT INFORMATION
  Report Type: 
  Country: None (occurrence: None)
  Receive Date: 20070827
  Receipt Date: 20070323
  Transmission Date: 20080115
  Serious: Yes (Other)
  Sender: FDA-Public Use
  Company Number: 2007023533

PATIENT

DRUGS (1)
  1. VFEND [Suspect]

REACTIONS (1)
  - RENAL FUNCTION TEST ABNORMAL [None]
